FAERS Safety Report 10089555 (Version 3)
Quarter: 2014Q2

REPORT INFORMATION
  Report Type: Spontaneous
  Country: JP (occurrence: JP)
  Receive Date: 20140421
  Receipt Date: 20140505
  Transmission Date: 20141212
  Serious: Yes (Hospitalization)
  Sender: FDA-Public Use
  Company Number: JP-SA-2014SA038617

PATIENT
  Age: 75 Year
  Sex: Female

DRUGS (8)
  1. AMARYL [Suspect]
     Indication: DIABETES MELLITUS
     Route: 048
     Dates: start: 20140315, end: 20140319
  2. MEROPEN [Suspect]
     Indication: MENINGITIS
     Route: 042
     Dates: start: 20140304, end: 20140319
  3. RIFAMPICIN [Concomitant]
     Indication: MENINGITIS TUBERCULOUS
     Route: 048
     Dates: start: 20140304, end: 20140319
  4. ISCOTIN [Concomitant]
     Indication: MENINGITIS TUBERCULOUS
     Route: 048
     Dates: start: 20140304, end: 20140319
  5. ESANBUTOL [Concomitant]
     Indication: MENINGITIS TUBERCULOUS
     Route: 048
     Dates: start: 20140304, end: 20140319
  6. PYRAMIDE [Concomitant]
     Indication: MENINGITIS TUBERCULOUS
     Route: 048
     Dates: start: 20140304, end: 20140319
  7. JANUVIA [Concomitant]
     Indication: DIABETES MELLITUS
     Route: 048
     Dates: start: 20140313, end: 20140319
  8. ACICLOVIR [Concomitant]
     Indication: MENINGITIS
     Route: 042
     Dates: start: 20140304, end: 20140311

REACTIONS (4)
  - Toxic epidermal necrolysis [Recovered/Resolved]
  - Pruritus [Recovered/Resolved]
  - Oedema [Recovered/Resolved]
  - Pyrexia [Recovered/Resolved]
